FAERS Safety Report 5735763-6 (Version None)
Quarter: 2008Q2

REPORT INFORMATION
  Report Type: 
  Country: None (occurrence: None)
  Receive Date: 20080509
  Receipt Date: 20080509
  Transmission Date: 20081010
  Serious: No
  Sender: FDA-Public Use
  Company Number: None

PATIENT
  Age: 75 Year
  Sex: Male
  Weight: 79.3795 kg

DRUGS (1)
  1. DIGITEK .25MG [Suspect]
     Indication: ARRHYTHMIA
     Dosage: .25MG 1 PER DAY PO
     Route: 048
     Dates: start: 20060713, end: 20061215

REACTIONS (4)
  - DIZZINESS [None]
  - HEADACHE [None]
  - PHARMACEUTICAL PRODUCT COMPLAINT [None]
  - SOMNOLENCE [None]
